FAERS Safety Report 6085056-5 (Version None)
Quarter: 2009Q1

REPORT INFORMATION
  Report Type: 
  Country: None (occurrence: None)
  Receive Date: 20090218
  Receipt Date: 20080918
  Transmission Date: 20090719
  Serious: Yes (Hospitalization)
  Sender: FDA-Public Use
  Company Number: 2008S1017175

PATIENT
  Age: 59 Year
  Sex: Male

DRUGS (18)
  1. LOVASTATIN [Suspect]
     Dosage: ORAL
     Route: 048
     Dates: start: 20080624, end: 20080715
  2. CELLCEPT [Concomitant]
  3. PREDNISONE [Concomitant]
  4. TACROLIMUS [Concomitant]
  5. ACYCLOVIR SODIUM [Concomitant]
  6. NORVASC [Concomitant]
  7. ASPIRIN 10GR TIMED DISINTEGRATION TAB [Concomitant]
  8. BACTRIM [Concomitant]
  9. VITAMIN D [Concomitant]
  10. FOLIC ACID [Concomitant]
  11. NEPHRO-VITE /01801401/ [Concomitant]
  12. LISINOPRIL [Concomitant]
  13. METOPROLOL [Concomitant]
  14. OMEGA-3 TRIGLYCERIDES [Concomitant]
  15. OLEIC ACID [Concomitant]
  16. OMEPRAZOLE [Concomitant]
  17. POTASSIUM PHOSPHATES [Concomitant]
  18. HYDROCODONE COMPOUND [Concomitant]

REACTIONS (1)
  - MYOSITIS [None]
